FAERS Safety Report 13901391 (Version 1)
Quarter: 2017Q3

REPORT INFORMATION
  Report Type: Report from Study
  Country: ES (occurrence: ES)
  Receive Date: 20170824
  Receipt Date: 20170824
  Transmission Date: 20171127
  Serious: Yes (Other)
  Sender: FDA-Public Use
  Company Number: ES-MYLANLABS-2017M1052274

PATIENT

DRUGS (4)
  1. PROPOFOL. [Suspect]
     Active Substance: PROPOFOL
     Indication: SEDATION
     Dosage: 50 MG
     Route: 042
  2. ROCURONIUM [Suspect]
     Active Substance: ROCURONIUM BROMIDE
     Indication: ANAESTHESIA
     Dosage: 0.07MG/KG AND 7MG IN TOTAL
     Route: 050
  3. FENTANYL. [Suspect]
     Active Substance: FENTANYL
     Indication: SEDATION
     Dosage: 2 DOSES OF 150 MICROG (1ST DOSE ADMINISTERED BEFORE ROCURONIUM AND ONE DOSE ADMINISTERED AFTER)
     Route: 042
  4. SODIUM CHLORIDE. [Concomitant]
     Active Substance: SODIUM CHLORIDE
     Indication: PRODUCT USED FOR UNKNOWN INDICATION
     Route: 050

REACTIONS (2)
  - Acute respiratory failure [Recovered/Resolved]
  - Sleep apnoea syndrome [Unknown]
